FAERS Safety Report 25245635 (Version 1)
Quarter: 2025Q2

REPORT INFORMATION
  Report Type: Spontaneous
  Country: FR (occurrence: None)
  Receive Date: 20250428
  Receipt Date: 20250428
  Transmission Date: 20250717
  Serious: Yes (Congenital Anomaly)
  Sender: MEDUNIK USA
  Company Number: None

PATIENT
  Sex: Male

DRUGS (1)
  1. SIKLOS [Suspect]
     Active Substance: HYDROXYUREA
     Indication: Sickle cell disease
     Route: 064
     Dates: start: 20240527, end: 20250128

REACTIONS (3)
  - Maternal exposure during pregnancy [Recovered/Resolved]
  - Renal cyst [Not Recovered/Not Resolved]
  - Atrial septal defect [Not Recovered/Not Resolved]

NARRATIVE: CASE EVENT DATE: 20240527
